FAERS Safety Report 18945121 (Version 2)
Quarter: 2021Q1

REPORT INFORMATION
  Report Type: Report from Study
  Country: CA (occurrence: CA)
  Receive Date: 20210226
  Receipt Date: 20210311
  Transmission Date: 20210420
  Serious: Yes (Life-Threatening)
  Sender: FDA-Public Use
  Company Number: CA-JNJFOC-20210232957

PATIENT
  Age: 30 Year
  Sex: Female
  Weight: 62 kg

DRUGS (3)
  1. STELARA [Suspect]
     Active Substance: USTEKINUMAB
     Indication: CROHN^S DISEASE
     Route: 058
     Dates: start: 20201223, end: 20210217
  2. STELARA [Suspect]
     Active Substance: USTEKINUMAB
  3. BENADRYL [Suspect]
     Active Substance: DIPHENHYDRAMINE HYDROCHLORIDE
     Indication: PREMEDICATION

REACTIONS (2)
  - Fatigue [Unknown]
  - Injection related reaction [Recovered/Resolved]

NARRATIVE: CASE EVENT DATE: 20210217
